FAERS Safety Report 10734736 (Version 3)
Quarter: 2015Q1

REPORT INFORMATION
  Report Type: Spontaneous
  Country: CD (occurrence: CD)
  Receive Date: 20150123
  Receipt Date: 20150129
  Transmission Date: 20150721
  Serious: Yes (Hospitalization, Other)
  Sender: FDA-Public Use
  Company Number: CG-009507513-1501COG008415

PATIENT
  Age: 26 Year
  Sex: Male

DRUGS (2)
  1. IVERMECTIN. [Suspect]
     Active Substance: IVERMECTIN
     Indication: FILARIASIS
  2. IVERMECTIN. [Suspect]
     Active Substance: IVERMECTIN
     Indication: ONCHOCERCIASIS
     Dosage: 4 TABLETS, ONE TIME
     Route: 048
     Dates: start: 20131223

REACTIONS (4)
  - Asthenia [Recovered/Resolved]
  - Loss of consciousness [Recovered/Resolved]
  - Vertigo [Recovered/Resolved]
  - Headache [Recovered/Resolved]

NARRATIVE: CASE EVENT DATE: 20131224
